FAERS Safety Report 23383456 (Version 2)
Quarter: 2024Q3

REPORT INFORMATION
  Report Type: Spontaneous
  Country: BR (occurrence: BR)
  Receive Date: 20240109
  Receipt Date: 20240703
  Transmission Date: 20241017
  Serious: Yes (Other)
  Sender: BRISTOL MYERS SQUIBB
  Company Number: BR-BRISTOL-MYERS SQUIBB COMPANY-2024-004212

PATIENT
  Age: 91 Year
  Sex: Female

DRUGS (1)
  1. ELIQUIS [Suspect]
     Active Substance: APIXABAN
     Indication: Cerebrovascular accident prophylaxis
     Dosage: 2,5MG X 60 FILM-COATED TABLETS
     Dates: start: 2018

REACTIONS (4)
  - Embolism [Unknown]
  - Labyrinthitis [Unknown]
  - Balance disorder [Unknown]
  - Product physical issue [Unknown]
